FAERS Safety Report 8182054-2 (Version None)
Quarter: 2012Q1

REPORT INFORMATION
  Report Type: 
  Country: None (occurrence: None)
  Receive Date: 20120302
  Receipt Date: 20120221
  Transmission Date: 20120608
  Serious: Yes (Hospitalization, Disabling)
  Sender: FDA-Public Use
  Company Number: US-MERCK-1112USA01089

PATIENT
  Age: 64 Year
  Sex: Female
  Weight: 90 kg

DRUGS (9)
  1. VITAMIN D (UNSPECIFIED) [Concomitant]
     Route: 065
     Dates: start: 20010101
  2. FOSAMAX [Suspect]
     Indication: OSTEOPOROSIS
     Route: 048
     Dates: start: 20011019, end: 20050101
  3. ALENDRONATE SODIUM [Suspect]
     Indication: OSTEOPOROSIS
     Route: 048
     Dates: start: 20100201, end: 20100501
  4. FOSAMAX PLUS D [Suspect]
     Indication: OSTEOPENIA
     Route: 048
     Dates: start: 20060401, end: 20100101
  5. FOSAMAX [Suspect]
     Indication: OSTEOPENIA
     Route: 048
     Dates: start: 20011019, end: 20050101
  6. PRILOSEC [Concomitant]
     Route: 048
     Dates: start: 19980101
  7. CALCIUM (UNSPECIFIED) [Concomitant]
     Route: 065
     Dates: start: 20010101
  8. ALENDRONATE SODIUM [Suspect]
     Indication: OSTEOPENIA
     Route: 048
     Dates: start: 20100201, end: 20100501
  9. FOSAMAX PLUS D [Suspect]
     Indication: OSTEOPOROSIS
     Route: 048
     Dates: start: 20060401, end: 20100101

REACTIONS (8)
  - FEMUR FRACTURE [None]
  - HYPERTENSION [None]
  - FRACTURE NONUNION [None]
  - RIB FRACTURE [None]
  - LOW TURNOVER OSTEOPATHY [None]
  - ASTHMA [None]
  - TOOTH DISORDER [None]
  - VITAMIN D DEFICIENCY [None]
